FAERS Safety Report 4367303-0 (Version None)
Quarter: 2004Q2

REPORT INFORMATION
  Report Type: 
  Country: None (occurrence: None)
  Receive Date: 20040601
  Receipt Date: 20040525
  Transmission Date: 20050107
  Serious: Yes (Other)
  Sender: FDA-Public Use
  Company Number: PHBS2004BR06886

PATIENT
  Age: 12 Year
  Sex: Male

DRUGS (4)
  1. RITALINA [Suspect]
     Indication: PSYCHOMOTOR HYPERACTIVITY
     Dosage: 1.5 DF/D
     Route: 048
     Dates: start: 20000101
  2. NASONEX [Concomitant]
     Dosage: UNK, QD
  3. AEROLIN ^GLAXO WELLCOME^ [Concomitant]
     Dosage: UNK, QID
  4. CLENIL [Concomitant]
     Dosage: UNK, BID

REACTIONS (1)
  - ASTHMA [None]
